FAERS Safety Report 4817626-3 (Version None)
Quarter: 2005Q4

REPORT INFORMATION
  Report Type: 
  Country: None (occurrence: None)
  Receive Date: 20051019
  Receipt Date: 20041105
  Transmission Date: 20060501
  Serious: Yes (Hospitalization)
  Sender: FDA-Public Use
  Company Number: PHEH2004US12001

PATIENT
  Age: 75 Year
  Sex: Female

DRUGS (1)
  1. MIACALCIN [Suspect]
     Indication: OSTEOPENIA
     Dosage: 200 IU, QD, INTRANASAL
     Dates: start: 20041009, end: 20041017

REACTIONS (5)
  - DIZZINESS [None]
  - HEADACHE [None]
  - HYPERTENSION [None]
  - NASAL DISCOMFORT [None]
  - VERTIGO [None]
